FAERS Safety Report 5795327-5 (Version None)
Quarter: 2008Q2

REPORT INFORMATION
  Report Type: 
  Country: None (occurrence: None)
  Receive Date: 20080630
  Receipt Date: 20080619
  Transmission Date: 20081010
  Serious: Yes (Other)
  Sender: FDA-Public Use
  Company Number: US-JNJFOC-20080205189

PATIENT
  Age: 64 Year
  Sex: Female

DRUGS (6)
  1. REMICADE [Suspect]
     Route: 042
  2. REMICADE [Suspect]
     Indication: RHEUMATOID ARTHRITIS
     Route: 042
  3. METHOTREXATE [Concomitant]
     Indication: RHEUMATOID ARTHRITIS
     Route: 058
  4. FOLATE [Concomitant]
  5. NEXIUM [Concomitant]
     Indication: GASTRITIS
  6. BONIVA [Concomitant]
     Indication: OSTEOPENIA

REACTIONS (3)
  - GALLBLADDER CANCER [None]
  - GASTRITIS [None]
  - OSTEOPENIA [None]
